FAERS Safety Report 6606960-2 (Version None)
Quarter: 2010Q1

REPORT INFORMATION
  Report Type: 
  Country: None (occurrence: None)
  Receive Date: 20100226
  Receipt Date: 20090409
  Transmission Date: 20100710
  Serious: Yes (Other)
  Sender: FDA-Public Use
  Company Number: US-ALLERGAN-0902517US

PATIENT
  Sex: Female

DRUGS (4)
  1. BOTOX [Suspect]
     Indication: TORTICOLLIS
     Dosage: 400 UNITS, SINGLE
     Route: 030
     Dates: start: 20071207, end: 20071207
  2. BOTOX [Suspect]
     Indication: MIGRAINE
     Dosage: UNK, UNKNOWN
     Route: 030
  3. BACLOFEN [Concomitant]
     Indication: MUSCLE RELAXANT THERAPY
  4. VALIUM [Concomitant]
     Indication: MUSCLE RELAXANT THERAPY

REACTIONS (13)
  - ANTIBODY TEST POSITIVE [None]
  - DRUG INEFFECTIVE [None]
  - DYSARTHRIA [None]
  - DYSPHAGIA [None]
  - DYSPHONIA [None]
  - DYSPNOEA [None]
  - ERYTHEMA [None]
  - MASS [None]
  - MUSCLE SPASMS [None]
  - OESOPHAGEAL DISORDER [None]
  - SWELLING FACE [None]
  - THROAT TIGHTNESS [None]
  - VOCAL CORD DISORDER [None]
